FAERS Safety Report 12928655 (Version 1)
Quarter: 2016Q4

REPORT INFORMATION
  Report Type: Spontaneous
  Country: VE (occurrence: VE)
  Receive Date: 20161110
  Receipt Date: 20161110
  Transmission Date: 20170207
  Serious: Yes (Hospitalization)
  Sender: FDA-Public Use
  Company Number: VE-BIOGEN-2016BI00314757

PATIENT
  Age: 27 Year
  Sex: Male

DRUGS (1)
  1. TYSABRI [Suspect]
     Active Substance: NATALIZUMAB
     Indication: MULTIPLE SCLEROSIS
     Route: 042
     Dates: start: 20160112

REACTIONS (5)
  - Myalgia [Unknown]
  - Generalised oedema [Unknown]
  - Asthenia [Unknown]
  - Bladder obstruction [Unknown]
  - Pyrexia [Unknown]

NARRATIVE: CASE EVENT DATE: 20161101
